FAERS Safety Report 7670165-7 (Version None)
Quarter: 2011Q3

REPORT INFORMATION
  Report Type: 
  Country: None (occurrence: None)
  Receive Date: 20110808
  Receipt Date: 20110729
  Transmission Date: 20111222
  Serious: Yes (Hospitalization)
  Sender: FDA-Public Use
  Company Number: US-ASTRAZENECA-2011SE37158

PATIENT
  Age: 72 Year
  Sex: Female

DRUGS (3)
  1. ASACOL [Suspect]
     Route: 065
  2. CRESTOR [Suspect]
     Route: 048
  3. PREDNISONE [Suspect]
     Route: 065

REACTIONS (1)
  - MALAISE [None]
